FAERS Safety Report 6200237-5 (Version None)
Quarter: 2009Q2

REPORT INFORMATION
  Report Type: 
  Country: None (occurrence: None)
  Receive Date: 20090522
  Receipt Date: 20070821
  Transmission Date: 20091009
  Serious: No
  Sender: FDA-Public Use
  Company Number: US-ALEXION-A200700049

PATIENT
  Sex: Male
  Weight: 77.098 kg

DRUGS (8)
  1. SOLIRIS [Suspect]
     Indication: PAROXYSMAL NOCTURNAL HAEMOGLOBINURIA
     Dosage: 600 MG, SINGLE
     Route: 042
     Dates: start: 20070808, end: 20070808
  2. SOLIRIS [Suspect]
     Dosage: 600 MG, SINGLE
     Route: 042
     Dates: start: 20070815, end: 20070815
  3. SOLIRIS [Suspect]
     Dosage: 600 MG, SINGLE
     Route: 042
     Dates: start: 20070822, end: 20070822
  4. SOLIRIS [Suspect]
     Dosage: 600 MG, SINGLE
     Route: 042
     Dates: start: 20070828, end: 20070828
  5. SOLIRIS [Suspect]
     Dosage: 900 MG, SINGLE
     Route: 042
     Dates: start: 20070919, end: 20070919
  6. PREDNISONE [Concomitant]
     Dosage: 20 MG, QD
     Route: 048
  7. MULTIVITAMIN /00831701/ [Concomitant]
     Dosage: UNK, BID
     Route: 048
  8. SOLU-CORTEF [Concomitant]
     Dates: start: 20070828, end: 20070828

REACTIONS (10)
  - ANXIETY [None]
  - BACK PAIN [None]
  - CHEST PAIN [None]
  - DYSPHONIA [None]
  - FATIGUE [None]
  - HEADACHE [None]
  - PRODUCTIVE COUGH [None]
  - PYREXIA [None]
  - RHINORRHOEA [None]
  - UPPER RESPIRATORY TRACT INFECTION [None]
